FAERS Safety Report 13729158 (Version 1)
Quarter: 2017Q3

REPORT INFORMATION
  Report Type: Spontaneous
  Country: IN (occurrence: IN)
  Receive Date: 20170707
  Receipt Date: 20170707
  Transmission Date: 20171127
  Serious: Yes (Other)
  Sender: FDA-Public Use
  Company Number: IN-ACCORD-045051

PATIENT
  Age: 12 Year
  Sex: Male

DRUGS (1)
  1. METHOTREXATE. [Suspect]
     Active Substance: METHOTREXATE
     Indication: PSORIASIS
     Dosage: RECEIVING APPROXIMATELY 0.4 MG/KG/WEEK IRREGULARLY FOR LAST 3 MONTHS

REACTIONS (2)
  - Inappropriate schedule of drug administration [Unknown]
  - Skin dystrophy [Recovered/Resolved]
